FAERS Safety Report 8996169 (Version 1)
Quarter: 2013Q1

REPORT INFORMATION
  Report Type: Spontaneous
  Country: AU (occurrence: AU)
  Receive Date: 20130103
  Receipt Date: 20130103
  Transmission Date: 20140127
  Serious: Yes (Death)
  Sender: FDA-Public Use
  Company Number: AU-BAXTER-2012BAX029213

PATIENT
  Age: 68 Year
  Sex: Female

DRUGS (1)
  1. SYNTHAMIN 17 AMINO ACID 10% WITHOUT ELECTROLYTES AND GLUCOSE 50% 1000M [Suspect]
     Indication: PARENTERAL NUTRITION
     Route: 042
     Dates: end: 20121225

REACTIONS (1)
  - Disease complication [Fatal]
